FAERS Safety Report 10910194 (Version 2)
Quarter: 2015Q1

REPORT INFORMATION
  Report Type: Spontaneous
  Country: MX (occurrence: MX)
  Receive Date: 20150312
  Receipt Date: 20150317
  Transmission Date: 20150721
  Serious: Yes (Death)
  Sender: FDA-Public Use
  Company Number: MX-ASTRAZENECA-2015SE21935

PATIENT
  Age: 70 Year
  Sex: Male

DRUGS (4)
  1. ZOLADEX [Suspect]
     Active Substance: GOSERELIN ACETATE
     Indication: PROSTATE CANCER
     Route: 058
     Dates: start: 2008, end: 201411
  2. CASODEX [Concomitant]
     Active Substance: BICALUTAMIDE
     Indication: PROSTATE CANCER
  3. PREDNISONE. [Concomitant]
     Active Substance: PREDNISONE
     Indication: PROSTATE CANCER
     Dates: start: 2013, end: 2014
  4. CHEMOTHERAPY [Concomitant]
     Active Substance: UNSPECIFIED INGREDIENT
     Indication: PROSTATE CANCER
     Dosage: 16 CYCLES
     Route: 042
     Dates: start: 2009, end: 2013

REACTIONS (1)
  - Cardio-respiratory arrest [Fatal]

NARRATIVE: CASE EVENT DATE: 20141130
